FAERS Safety Report 6652560-8 (Version None)
Quarter: 2010Q1

REPORT INFORMATION
  Report Type: 
  Country: None (occurrence: None)
  Receive Date: 20100325
  Receipt Date: 20100311
  Transmission Date: 20100710
  Serious: Yes (Other)
  Sender: FDA-Public Use
  Company Number: NL-MYLANLABS-2010S1004282

PATIENT
  Age: 48 Year
  Sex: Female
  Weight: 69 kg

DRUGS (2)
  1. METFORMIN HCL [Suspect]
     Indication: DIABETES MELLITUS
     Dates: start: 20090903
  2. METFORMIN HCL [Suspect]
     Dates: end: 20100216

REACTIONS (3)
  - HEADACHE [None]
  - VERTIGO [None]
  - WEIGHT DECREASED [None]
